FAERS Safety Report 9337101 (Version 3)
Quarter: 2013Q3

REPORT INFORMATION
  Report Type: Spontaneous
  Country: DE (occurrence: DE)
  Receive Date: 20130607
  Receipt Date: 20130820
  Transmission Date: 20140515
  Serious: Yes (Disabling)
  Sender: FDA-Public Use
  Company Number: DE-NAPPMUNDI-DEU-2013-0011733

PATIENT
  Age: 52 Year
  Sex: Female

DRUGS (13)
  1. MST 60 RETARD-GRANULAT [Suspect]
     Indication: PAIN
     Dosage: 60 MG, TID
     Route: 048
     Dates: start: 2010
  2. MST 60 RETARD-GRANULAT [Suspect]
     Dosage: 30 MG, UNK
     Route: 048
     Dates: end: 2010
  3. MORPHINE SULFATE [Suspect]
     Indication: PAIN
     Dosage: 700 MG, SEE TEXT
     Route: 037
     Dates: start: 2005
  4. L-THYROXIN [Concomitant]
     Dosage: 150 MG, AM
     Dates: start: 1989
  5. PANTOPRAZOL ACTAVIS [Concomitant]
     Dosage: 40 MG, AM
     Dates: start: 1990
  6. NOVALGIN                           /06276704/ [Concomitant]
     Dosage: 500 MG, PRN
     Dates: start: 1988
  7. VOLTAREN                           /00372301/ [Concomitant]
     Dosage: 50 MG, PRN
     Dates: start: 2006
  8. SALBUHEXAL                         /00139501/ [Concomitant]
     Dosage: 100 MCG, PRN
     Dates: start: 1996
  9. FREKA-CLYSS [Concomitant]
     Dosage: 120 ML, PRN
     Dates: start: 2005
  10. FURO CT                            /00032601/ [Concomitant]
     Dosage: 40 MG, PRN
     Dates: start: 2002
  11. EMLAPATCH [Concomitant]
     Dosage: UNK, PRN
     Route: 062
     Dates: start: 2010
  12. LEVOMEPROMAZIN-NEURAXPHARM         /00038602/ [Concomitant]
     Dosage: 25 MG, PM
     Dates: start: 2012
  13. VERSATIS [Concomitant]
     Dosage: 5 %, UNK
     Route: 062
     Dates: start: 2012

REACTIONS (3)
  - Tooth loss [Unknown]
  - Tooth fracture [Unknown]
  - Weight decreased [Unknown]
